FAERS Safety Report 23953977 (Version 1)
Quarter: 2024Q2

REPORT INFORMATION
  Report Type: Spontaneous
  Country: US (occurrence: None)
  Receive Date: 20240609
  Receipt Date: 20240609
  Transmission Date: 20240716
  Serious: No
  Sender: FDA-Public Use
  Company Number: US-ROCHE-3541321

PATIENT
  Age: 69 Year
  Sex: Male

DRUGS (1)
  1. ENSPRYNG [Suspect]
     Active Substance: SATRALIZUMAB-MWGE
     Indication: Product used for unknown indication
     Dosage: WEEKS 0, 2 AND 4 THEN EVERY 4 WEEKS
     Route: 058

REACTIONS (2)
  - Nasal congestion [Unknown]
  - Electric shock sensation [Unknown]
